FAERS Safety Report 25636260 (Version 2)
Quarter: 2025Q3

REPORT INFORMATION
  Report Type: Spontaneous
  Country: JP (occurrence: JP)
  Receive Date: 20250803
  Receipt Date: 20250929
  Transmission Date: 20251021
  Serious: Yes (Hospitalization, Other)
  Sender: MERCK SHARP & DOHME LLC
  Company Number: JP-009507513-2315088

PATIENT
  Age: 65 Year
  Sex: Male

DRUGS (1)
  1. KEYTRUDA [Suspect]
     Active Substance: PEMBROLIZUMAB
     Indication: Lung neoplasm malignant
     Route: 065

REACTIONS (9)
  - Febrile neutropenia [Unknown]
  - Stomatitis [Unknown]
  - Malignant neoplasm progression [Unknown]
  - Pulmonary congestion [Unknown]
  - Hypophysitis [Unknown]
  - Pleural effusion [Unknown]
  - Immune-mediated dermatitis [Unknown]
  - Renal disorder [Unknown]
  - Pericardial effusion [Unknown]
